FAERS Safety Report 6406980-7 (Version None)
Quarter: 2009Q4

REPORT INFORMATION
  Report Type: 
  Country: None (occurrence: None)
  Receive Date: 20091014
  Receipt Date: 20091008
  Transmission Date: 20100525
  Serious: Yes (Hospitalization)
  Sender: FDA-Public Use
  Company Number: WAES 0909USA04137

PATIENT
  Age: 73 Year
  Sex: Male

DRUGS (6)
  1. ZOLINZA [Suspect]
     Indication: MULTIPLE MYELOMA
     Dosage: 400 MG DAILY PO
     Route: 048
     Dates: start: 20090526, end: 20090720
  2. ZOLINZA [Suspect]
     Indication: MULTIPLE MYELOMA
     Dosage: 400 MG DAILY PO
     Route: 048
     Dates: start: 20090811, end: 20090824
  3. BORTEZOMIB [Suspect]
     Dosage: 2.11 MG DAILY, 2.17 MG DAILY,1.631 MG DAILY, 1.106 MG DAILY
     Dates: start: 20090526, end: 20090605
  4. BORTEZOMIB [Suspect]
     Dosage: 2.11 MG DAILY, 2.17 MG DAILY,1.631 MG DAILY, 1.106 MG DAILY
     Dates: start: 20090616, end: 20090626
  5. BORTEZOMIB [Suspect]
     Dosage: 2.11 MG DAILY, 2.17 MG DAILY,1.631 MG DAILY, 1.106 MG DAILY
     Dates: start: 20090707, end: 20090717
  6. BORTEZOMIB [Suspect]
     Dosage: 2.11 MG DAILY, 2.17 MG DAILY,1.631 MG DAILY, 1.106 MG DAILY
     Dates: start: 20090811, end: 20090821

REACTIONS (5)
  - BLOOD CREATININE INCREASED [None]
  - BLOOD UREA INCREASED [None]
  - DISEASE PROGRESSION [None]
  - MALNUTRITION [None]
  - WHITE BLOOD CELL COUNT INCREASED [None]
